FAERS Safety Report 8914614 (Version 1)
Quarter: 2012Q4

REPORT INFORMATION
  Report Type: 
  Country: US (occurrence: US)
  Receive Date: 20121119
  Receipt Date: 20121119
  Transmission Date: 20130627
  Serious: Yes (Hospitalization, Other)
  Sender: FDA-Public Use
  Company Number: US-NOVOPROD-364001

PATIENT
  Age: 60 Year
  Sex: Male
  Weight: 74.84 kg

DRUGS (7)
  1. LEVEMIR [Suspect]
     Indication: TYPE 1 DIABETES MELLITUS
     Dosage: 44 units in am
     Route: 058
     Dates: start: 2010
  2. LISINOPRIL [Concomitant]
     Indication: PROPHYLAXIS
     Route: 048
  3. AMLODIPINE [Concomitant]
     Indication: BLOOD PRESSURE
     Route: 048
  4. PRILOSEC                           /00661201/ [Concomitant]
     Indication: PRODUCT USED FOR UNKNOWN INDICATION
     Route: 048
  5. HYDROCODONE [Concomitant]
     Indication: PAIN
     Dosage: As needed
     Route: 048
  6. TOPROL [Concomitant]
     Indication: ATRIAL FIBRILLATION
     Dosage: UNK
  7. COUMADIN                           /00014802/ [Concomitant]
     Indication: PRODUCT USED FOR UNKNOWN INDICATION

REACTIONS (3)
  - Atrial fibrillation [Recovered/Resolved]
  - Staphylococcal infection [Recovered/Resolved]
  - Hypoglycaemic unconsciousness [Recovered/Resolved]
